FAERS Safety Report 15081233 (Version 1)
Quarter: 2018Q3

REPORT INFORMATION
  Report Type: Spontaneous
  Country: US (occurrence: US)
  Receive Date: 20180628
  Receipt Date: 20180628
  Transmission Date: 20181010
  Serious: No
  Sender: FDA-Public Use
  Company Number: US-ACCORD-056772

PATIENT
  Sex: Male

DRUGS (1)
  1. CLNZ (CLONAZEPAM) [Suspect]
     Active Substance: CLONAZEPAM
     Indication: PRODUCT USED FOR UNKNOWN INDICATION
     Dosage: TAKING CLONAZEPAM FOR 8?10 YEARS

REACTIONS (1)
  - Drug screen negative [Unknown]
